FAERS Safety Report 21840395 (Version 3)
Quarter: 2023Q1

REPORT INFORMATION
  Report Type: Report from Study
  Country: CN (occurrence: CN)
  Receive Date: 20230110
  Receipt Date: 20230315
  Transmission Date: 20230417
  Serious: Yes (Hospitalization)
  Sender: FDA-Public Use
  Company Number: CN-ABBVIE-4200002

PATIENT
  Age: 24 Year
  Sex: Female
  Weight: 37 kg

DRUGS (3)
  1. HUMIRA [Suspect]
     Active Substance: ADALIMUMAB
     Indication: Crohn^s disease
     Route: 058
     Dates: start: 20220908, end: 20220921
  2. HUMIRA [Suspect]
     Active Substance: ADALIMUMAB
     Dosage: 1 IN ONCE
     Route: 058
     Dates: start: 20220907, end: 20220907
  3. HUMIRA [Suspect]
     Active Substance: ADALIMUMAB
     Dosage: 40 MILLIGRAM
     Route: 058
     Dates: start: 20220922, end: 20221005

REACTIONS (3)
  - Intestinal obstruction [Recovered/Resolved]
  - Sleep disorder [Not Recovered/Not Resolved]
  - Depression [Not Recovered/Not Resolved]

NARRATIVE: CASE EVENT DATE: 20221001
